FAERS Safety Report 7397613-4 (Version None)
Quarter: 2011Q2

REPORT INFORMATION
  Report Type: 
  Country: None (occurrence: None)
  Receive Date: 20110406
  Receipt Date: 20110324
  Transmission Date: 20111010
  Serious: Yes (Death, Hospitalization)
  Sender: FDA-Public Use
  Company Number: FR-CELGENEUS-056-21880-09020407

PATIENT
  Sex: Female

DRUGS (3)
  1. MELPHALAN [Suspect]
     Dosage: .18 MILLIGRAM/KILOGRAM
     Route: 048
     Dates: start: 20080503, end: 20081022
  2. REVLIMID [Suspect]
     Dosage: 10 MILLIGRAM
     Route: 048
     Dates: start: 20080503, end: 20081022
  3. DEXAMETHASONE [Suspect]
     Dosage: 40 MILLIGRAM
     Route: 048
     Dates: start: 20080503, end: 20081022

REACTIONS (1)
  - BILE DUCT CANCER [None]
